FAERS Safety Report 9934651 (Version 1)
Quarter: 2014Q1

REPORT INFORMATION
  Report Type: Report from Study
  Country: NL (occurrence: NL)
  Receive Date: 20140228
  Receipt Date: 20140228
  Transmission Date: 20141002
  Serious: Yes (Hospitalization)
  Sender: FDA-Public Use
  Company Number: NL-ABBVIE-14P-114-1206746-00

PATIENT
  Age: 51 Year
  Sex: Female

DRUGS (1)
  1. DUODOPA [Suspect]
     Indication: PARKINSON^S DISEASE
     Dosage: 20/5MG/ML
     Dates: start: 20071022, end: 20090326

REACTIONS (6)
  - Surgery [Recovered/Resolved]
  - Drug effect decreased [Unknown]
  - Hyperchlorhydria [Unknown]
  - Musculoskeletal stiffness [Unknown]
  - On and off phenomenon [Unknown]
  - Device dislocation [Unknown]
